FAERS Safety Report 23129956 (Version 1)
Quarter: 2023Q4

REPORT INFORMATION
  Report Type: Report from Study
  Country: US (occurrence: US)
  Receive Date: 20231031
  Receipt Date: 20231031
  Transmission Date: 20240110
  Serious: Yes (Death, Life-Threatening, Other)
  Sender: FDA-Public Use
  Company Number: US-PFIZER INC-PV202300176565

PATIENT
  Age: 90 Year

DRUGS (5)
  1. OXALIPLATIN [Suspect]
     Active Substance: OXALIPLATIN
     Indication: Oesophageal adenocarcinoma
     Dosage: 130 MG/M2, EVERY 3 WEEKS, 3 CYCLES, DAY 1 OF EACH 3 WEEK
     Route: 042
  2. EPIRUBICIN HYDROCHLORIDE [Suspect]
     Active Substance: EPIRUBICIN HYDROCHLORIDE
     Indication: Oesophageal adenocarcinoma
     Dosage: 50 MG/M2, EVERY 3 WEEKS, 3 CYCLES, DAY 1 OF EACH 3 WEEK
     Route: 042
  3. XELODA [Suspect]
     Active Substance: CAPECITABINE
     Indication: Oesophageal adenocarcinoma
     Dosage: 625 MG/M2, 2X/DAY, 3 CYCLES
     Route: 048
  4. PEMBROLIZUMAB [Suspect]
     Active Substance: PEMBROLIZUMAB
     Indication: Oesophageal adenocarcinoma
     Dosage: 200 MG, EVERY 3 WEEKS,  CYCLES, DAY 1 OF EACH 3 WEEK CYCLE
     Route: 042
  5. PEMBROLIZUMAB [Suspect]
     Active Substance: PEMBROLIZUMAB
     Dosage: 14 DOSES (POSTOPERATIVE CHEMOIMMUNOTHERAPY)

REACTIONS (1)
  - Gastric haemorrhage [Fatal]
